FAERS Safety Report 6021515-9 (Version None)
Quarter: 2008Q4

REPORT INFORMATION
  Report Type: 
  Country: None (occurrence: None)
  Receive Date: 20081223
  Receipt Date: 20080325
  Transmission Date: 20090506
  Serious: Yes (Hospitalization)
  Sender: FDA-Public Use
  Company Number: 554912

PATIENT
  Age: 78 Year
  Sex: Male

DRUGS (3)
  1. TAMIFLU [Suspect]
     Indication: INFLUENZA IMMUNISATION
     Dosage: 2 PER DAY
  2. UNKNOWN HYPERTENSION DRUG (ANTIHYPERTENSIVE NOS) [Concomitant]
  3. DOLOBID [Concomitant]

REACTIONS (1)
  - ARRHYTHMIA [None]
